FAERS Safety Report 8063735-8 (Version None)
Quarter: 2012Q1

REPORT INFORMATION
  Report Type: 
  Country: None (occurrence: None)
  Receive Date: 20120123
  Receipt Date: 20120116
  Transmission Date: 20120608
  Serious: Yes (Other)
  Sender: FDA-Public Use
  Company Number: PHHY2011JP112744

PATIENT
  Age: 74 Year
  Sex: Female

DRUGS (6)
  1. ETHAMBUTOL HYDROCHLORIDE [Suspect]
     Indication: PULMONARY TUBERCULOSIS
  2. PYRAZINAMIDE [Suspect]
     Indication: PULMONARY TUBERCULOSIS
  3. RIFAMPICIN [Suspect]
     Indication: PULMONARY TUBERCULOSIS
     Dosage: 150 MG, UNK
  4. PACLITAXEL [Suspect]
     Indication: OVARIAN CANCER
     Dosage: 70 MG/M2, UNK
  5. ISONIAZID [Suspect]
     Indication: PULMONARY TUBERCULOSIS
  6. CARBOPLATIN [Suspect]
     Indication: OVARIAN CANCER

REACTIONS (2)
  - CONCOMITANT DISEASE PROGRESSION [None]
  - NEUROPATHY PERIPHERAL [None]
